FAERS Safety Report 8435980-0 (Version None)
Quarter: 2012Q2

REPORT INFORMATION
  Report Type: 
  Country: None (occurrence: None)
  Receive Date: 20120614
  Receipt Date: 20120530
  Transmission Date: 20120825
  Serious: Yes (Death, Other)
  Sender: FDA-Public Use
  Company Number: JP-WATSON-2012-08271

PATIENT
  Age: 77 Year
  Sex: Male
  Weight: 42.4 kg

DRUGS (2)
  1. METHOTREXATE [Suspect]
     Indication: RHEUMATOID ARTHRITIS
     Dosage: 6 MG, 1/WEEK
     Route: 065
  2. TACROLIMUS [Suspect]
     Indication: RHEUMATOID ARTHRITIS
     Dosage: 1 MG, DAILY
     Route: 065

REACTIONS (5)
  - PLEURAL EFFUSION [None]
  - BURKITT'S LYMPHOMA [None]
  - LYMPHOPROLIFERATIVE DISORDER [None]
  - LYMPHOMA [None]
  - RESPIRATORY DISTRESS [None]
